FAERS Safety Report 5725444-7 (Version None)
Quarter: 2008Q2

REPORT INFORMATION
  Report Type: 
  Country: None (occurrence: None)
  Receive Date: 20080501
  Receipt Date: 20080421
  Transmission Date: 20081010
  Serious: Yes (Life-Threatening)
  Sender: FDA-Public Use
  Company Number: FR-PFIZER INC-2008035804

PATIENT
  Age: 8 Month
  Sex: Female
  Weight: 10 kg

DRUGS (5)
  1. FOSPHENYTOIN SODIUM [Suspect]
     Indication: STATUS EPILEPTICUS
     Dosage: DAILY DOSE:15MG/KG
     Route: 042
  2. DIAZEPAM [Suspect]
     Indication: STATUS EPILEPTICUS
     Dosage: DAILY DOSE:.5MG/KG
     Route: 042
  3. PHENOBARBITAL TAB [Suspect]
     Indication: STATUS EPILEPTICUS
     Dosage: DAILY DOSE:10MG/KG
     Route: 042
  4. CLONAZEPAM [Suspect]
     Indication: STATUS EPILEPTICUS
     Route: 042
  5. THIOPENTAL SODIUM [Suspect]
     Indication: STATUS EPILEPTICUS
     Dosage: DAILY DOSE:39MG/KG
     Route: 042

REACTIONS (3)
  - CARDIAC ARREST [None]
  - CELL DEATH [None]
  - HEPATIC FAILURE [None]
